FAERS Safety Report 6644732-3 (Version None)
Quarter: 2010Q1

REPORT INFORMATION
  Report Type: 
  Country: None (occurrence: None)
  Receive Date: 20100322
  Receipt Date: 20100310
  Transmission Date: 20100710
  Serious: Yes (Other)
  Sender: FDA-Public Use
  Company Number: CA-PFIZER INC-2010031530

PATIENT
  Sex: Female

DRUGS (2)
  1. CHAMPIX [Suspect]
     Dosage: UNK
     Route: 048
     Dates: start: 20100201, end: 20100309
  2. CHAMPIX [Suspect]
     Dosage: UNK
     Route: 048
     Dates: start: 20010310

REACTIONS (2)
  - MENSTRUATION DELAYED [None]
  - NAUSEA [None]
